FAERS Safety Report 5741529-3 (Version None)
Quarter: 2008Q2

REPORT INFORMATION
  Report Type: 
  Country: None (occurrence: None)
  Receive Date: 20080519
  Receipt Date: 20080313
  Transmission Date: 20081010
  Serious: No
  Sender: FDA-Public Use
  Company Number: US-BAYER-200816694NA

PATIENT
  Age: 44 Year
  Sex: Male
  Weight: 97 kg

DRUGS (2)
  1. ULTRAVIST 370 [Suspect]
     Indication: ANGIOGRAM
     Route: 042
     Dates: start: 20080312, end: 20080312
  2. FLONASE [Concomitant]

REACTIONS (3)
  - ERYTHEMA [None]
  - EYE OEDEMA [None]
  - OCULAR HYPERAEMIA [None]
